FAERS Safety Report 16538347 (Version 2)
Quarter: 2019Q3

REPORT INFORMATION
  Report Type: Spontaneous
  Country: IT (occurrence: IT)
  Receive Date: 20190708
  Receipt Date: 20190805
  Transmission Date: 20191004
  Serious: Yes (Life-Threatening, Hospitalization, Other)
  Sender: FDA-Public Use
  Company Number: IT-AUROBINDO-AUR-APL-2019-038515

PATIENT

DRUGS (9)
  1. CLOZAPINE. [Suspect]
     Active Substance: CLOZAPINE
     Dosage: 100 MILLIGRAM, DAILY (100 MG, QD)
     Route: 065
     Dates: start: 2016
  2. ARIPIPRAZOLE. [Suspect]
     Active Substance: ARIPIPRAZOLE
     Indication: SCHIZOAFFECTIVE DISORDER
     Dosage: 400 MILLIGRAM,1 MONTH,LONG-ACTING
     Route: 065
  3. ARIPIPRAZOLE. [Suspect]
     Active Substance: ARIPIPRAZOLE
     Dosage: 400 MILLIGRAM,1 MONTH,LONG-ACTING
     Route: 065
     Dates: start: 201609
  4. ARIPIPRAZOLE. [Suspect]
     Active Substance: ARIPIPRAZOLE
     Indication: SCHIZOAFFECTIVE DISORDER
     Dosage: 400 MILLIGRAM, EVERY MONTH (400 MG, QM, LONG-ACTING)
     Route: 065
     Dates: start: 201609
  5. VALPROIC ACID. [Concomitant]
     Active Substance: VALPROIC ACID
     Indication: SCHIZOAFFECTIVE DISORDER
     Dosage: 500 MILLIGRAM, TWO TIMES A DAY
     Route: 065
  6. VALPROATE SODIUM. [Suspect]
     Active Substance: VALPROATE SODIUM
     Indication: SCHIZOAFFECTIVE DISORDER
     Dosage: 500 MILLIGRAM, TWO TIMES A DAY (500 MG, BID)
     Route: 065
  7. RISPERIDONE. [Concomitant]
     Active Substance: RISPERIDONE
     Indication: PRODUCT USED FOR UNKNOWN INDICATION
     Dosage: UNK, GRADUALLY TAPPER OFF
     Route: 065
  8. CLOZAPINE. [Suspect]
     Active Substance: CLOZAPINE
     Indication: SCHIZOAFFECTIVE DISORDER
     Dosage: 100 MILLIGRAM, TWO TIMES A DAY (LOW DOSE)
     Route: 065
     Dates: start: 2016, end: 2016
  9. LORAZEPAM. [Concomitant]
     Active Substance: LORAZEPAM
     Indication: SCHIZOAFFECTIVE DISORDER
     Dosage: 1 MILLIGRAM, DAILY (1 MG, QD)
     Route: 065
     Dates: start: 201609

REACTIONS (2)
  - Pericardial effusion [Recovered/Resolved]
  - Pericarditis [Recovered/Resolved]
